FAERS Safety Report 5940248-8 (Version None)
Quarter: 2008Q4

REPORT INFORMATION
  Report Type: 
  Country: None (occurrence: None)
  Receive Date: 20081030
  Receipt Date: 20081021
  Transmission Date: 20090506
  Serious: Yes (Hospitalization, Other)
  Sender: FDA-Public Use
  Company Number: 2008AP002841

PATIENT
  Age: 70 Year
  Sex: Female

DRUGS (3)
  1. TRAZODONE HCL [Suspect]
     Indication: SLEEP DISORDER
     Dosage: 0.5 TAB;QD;PO;  0.75 TAB;QD;PO
     Dates: start: 20080901
  2. TRAZODONE HCL [Suspect]
     Indication: SLEEP DISORDER
     Dosage: 0.75 TAB;QD;PO
     Route: 048
  3. ESCITALOPRAM [Concomitant]

REACTIONS (10)
  - ARTHRALGIA [None]
  - CONVULSION [None]
  - DEPRESSION [None]
  - HEADACHE [None]
  - NAUSEA [None]
  - OEDEMA [None]
  - PAIN IN EXTREMITY [None]
  - PARAESTHESIA [None]
  - PRURITUS [None]
  - URINARY INCONTINENCE [None]
